FAERS Safety Report 25912507 (Version 1)
Quarter: 2025Q4

REPORT INFORMATION
  Report Type: Report from Study
  Country: US (occurrence: US)
  Receive Date: 20251013
  Receipt Date: 20251013
  Transmission Date: 20260118
  Serious: No
  Sender: DR REDDYS
  Company Number: US-DRL-USA-USA/2025/10/015240

PATIENT
  Sex: Female
  Weight: 12.93 kg

DRUGS (2)
  1. JAVYGTOR [Suspect]
     Active Substance: SAPROPTERIN DIHYDROCHLORIDE
     Indication: Hyperphenylalaninaemia
     Dosage: DISSOLVE TWO AND A HALF 100 MG POWDER PACKETS IN 4 TO 8 OUNCES OF WATER OR APPLE JUICE AND TAKE ONCE
     Route: 048
  2. VITAMIN D3 [Concomitant]
     Active Substance: CHOLECALCIFEROL
     Indication: Product used for unknown indication
     Route: 065

REACTIONS (3)
  - Prescription drug used without a prescription [Unknown]
  - Overdose [Unknown]
  - Product prescribing error [Unknown]
